FAERS Safety Report 5724492-0 (Version None)
Quarter: 2008Q2

REPORT INFORMATION
  Report Type: 
  Country: None (occurrence: None)
  Receive Date: 20080429
  Receipt Date: 20080418
  Transmission Date: 20081010
  Serious: Yes (Death, Life-Threatening, Other)
  Sender: FDA-Public Use
  Company Number: 062-21880-08030226

PATIENT
  Age: 59 Year
  Sex: Male
  Weight: 70 kg

DRUGS (7)
  1. REVLIMID [Suspect]
     Indication: MULTIPLE MYELOMA
     Dosage: 25 MG, 3 CYCLES, ORAL
     Route: 048
     Dates: start: 20071108, end: 20080102
  2. REVLIMID [Suspect]
     Indication: MULTIPLE MYELOMA
     Dosage: 25 MG, 3 CYCLES, ORAL
     Route: 048
     Dates: start: 20080117, end: 20080206
  3. DEXAMETHASONE TAB [Concomitant]
  4. DIFLUCAN [Concomitant]
  5. CLEXANE (HEPARIN-FRACTION, SOIDUM SALT) [Concomitant]
  6. MORPHINE SULFATE [Concomitant]
  7. CITALOPRAM HYDROBROMIDE [Concomitant]

REACTIONS (6)
  - BLINDNESS [None]
  - CEREBRAL ARTERY EMBOLISM [None]
  - CEREBRAL ISCHAEMIA [None]
  - CEREBROVASCULAR ACCIDENT [None]
  - INFARCTION [None]
  - RETINAL ISCHAEMIA [None]
